FAERS Safety Report 18044915 (Version 1)
Quarter: 2020Q3

REPORT INFORMATION
  Report Type: Spontaneous
  Country: US (occurrence: US)
  Receive Date: 20200720
  Receipt Date: 20200720
  Transmission Date: 20201103
  Serious: Yes (Death, Other)
  Sender: FDA-Public Use
  Company Number: US-PURDUE-USA-2020-0157927

PATIENT
  Sex: Male

DRUGS (1)
  1. OXYCONTIN [Suspect]
     Active Substance: OXYCODONE HYDROCHLORIDE
     Indication: PRODUCT USED FOR UNKNOWN INDICATION
     Dosage: UNK
     Route: 048

REACTIONS (17)
  - Insomnia [Unknown]
  - Night sweats [Unknown]
  - Drug dependence [Unknown]
  - Tooth loss [Unknown]
  - Confusional state [Unknown]
  - General physical health deterioration [Unknown]
  - Headache [Unknown]
  - Amnesia [Unknown]
  - Prescription drug used without a prescription [Unknown]
  - Death [Fatal]
  - Vomiting [Unknown]
  - Withdrawal syndrome [Unknown]
  - Personality change [Unknown]
  - Pain [Unknown]
  - Dental caries [Unknown]
  - Weight decreased [Unknown]
  - Diarrhoea [Unknown]

NARRATIVE: CASE EVENT DATE: 20170603
